FAERS Safety Report 8833564 (Version 1)
Quarter: 2012Q4

REPORT INFORMATION
  Report Type: 
  Country: US (occurrence: US)
  Receive Date: 20121010
  Receipt Date: 20121010
  Transmission Date: 20130627
  Serious: Yes (Hospitalization, Other)
  Sender: FDA-Public Use
  Company Number: US-009507513-2010SP053045

PATIENT

DRUGS (3)
  1. NUVARING [Suspect]
     Indication: CONTRACEPTION
     Dates: start: 200210
  2. DARVOCET-N [Suspect]
     Indication: PRODUCT USED FOR UNKNOWN INDICATION
  3. CODEINE [Suspect]
     Indication: PRODUCT USED FOR UNKNOWN INDICATION

REACTIONS (34)
  - Lymphoma [Recovering/Resolving]
  - Hypercoagulation [Unknown]
  - Pneumonia [Unknown]
  - Syncope [Unknown]
  - Atelectasis [Unknown]
  - Varicose vein [Unknown]
  - Muscle spasms [Unknown]
  - Pulmonary embolism [Unknown]
  - Phlebitis [Not Recovered/Not Resolved]
  - Deep vein thrombosis [Recovering/Resolving]
  - Pulmonary infarction [Unknown]
  - Anxiety [Unknown]
  - Gastrooesophageal reflux disease [Unknown]
  - Hypersensitivity [Unknown]
  - Drug hypersensitivity [Unknown]
  - Cyst [Unknown]
  - Muscle strain [Unknown]
  - Ligament sprain [Unknown]
  - Contusion [Unknown]
  - Bronchitis [Unknown]
  - Tonsillectomy [Unknown]
  - Eye disorder [Unknown]
  - Adenoidectomy [Unknown]
  - Vocal cord polyp [Unknown]
  - Keratitis [Unknown]
  - Chronic obstructive pulmonary disease [Unknown]
  - Calcinosis [Unknown]
  - Headache [Unknown]
  - Nausea [Unknown]
  - Vomiting [Unknown]
  - Pain in extremity [Unknown]
  - Migraine [Unknown]
  - Plantar fasciitis [Unknown]
  - Injection [Unknown]
